FAERS Safety Report 6466108-4 (Version None)
Quarter: 2009Q4

REPORT INFORMATION
  Report Type: 
  Country: None (occurrence: None)
  Receive Date: 20091201
  Receipt Date: 20091201
  Transmission Date: 20100525
  Serious: Yes (Life-Threatening, Disabling)
  Sender: FDA-Public Use
  Company Number: None

PATIENT
  Sex: Male
  Weight: 102.0593 kg

DRUGS (12)
  1. PAXIL [Suspect]
     Indication: SCHIZOPHRENIA
     Dosage: 40 MGS 2 TIME DAY
     Dates: start: 20000101, end: 20060101
  2. RISPERDAL [Suspect]
     Indication: DIABETES MELLITUS
     Dosage: 1 MG 3 TIMES
     Dates: start: 20000101, end: 20060101
  3. RISPERDAL [Suspect]
     Indication: PARKINSON'S DISEASE
     Dosage: 1 MG 3 TIMES
     Dates: start: 20000101, end: 20060101
  4. AVANDIA [Concomitant]
  5. ACTOS [Concomitant]
  6. VIOXX [Concomitant]
  7. CELEBREX [Concomitant]
  8. NAPROXIN [Concomitant]
  9. ALEVE [Concomitant]
  10. ZOLOFT [Concomitant]
  11. PROZAC [Concomitant]
  12. WELLBUTRIN [Concomitant]

REACTIONS (1)
  - UNEVALUABLE EVENT [None]
